FAERS Safety Report 9771024 (Version 1)
Quarter: 2013Q4

REPORT INFORMATION
  Report Type: Spontaneous
  Country: GB (occurrence: GB)
  Receive Date: 20131218
  Receipt Date: 20131218
  Transmission Date: 20140711
  Serious: Yes (Other)
  Sender: FDA-Public Use
  Company Number: PHHY2013GB145021

PATIENT
  Age: 46 Year
  Sex: Female
  Weight: 63.5 kg

DRUGS (3)
  1. AMOXICILLIN [Suspect]
     Indication: BACTERIAL INFECTION
     Dosage: 500 MG, TID
     Route: 048
     Dates: start: 20131126, end: 20131129
  2. PAROXETINE [Concomitant]
  3. FERROUS FUMARATE [Concomitant]

REACTIONS (2)
  - Scleral discolouration [Recovered/Resolved]
  - Fatigue [Recovered/Resolved]
